FAERS Safety Report 17705137 (Version 1)
Quarter: 2020Q2

REPORT INFORMATION
  Report Type: Spontaneous
  Country: US (occurrence: US)
  Receive Date: 20200424
  Receipt Date: 20200424
  Transmission Date: 20200714
  Serious: No
  Sender: FDA-Public Use
  Company Number: None

PATIENT
  Age: 45 Year
  Sex: Male

DRUGS (2)
  1. MAVYRET [Suspect]
     Active Substance: GLECAPREVIR\PIBRENTASVIR
     Indication: HEPATITIS C
     Dosage: ?          OTHER DOSE:100-40MG X 3;?
     Route: 048
     Dates: start: 202003
  2. MAVYRET [Suspect]
     Active Substance: GLECAPREVIR\PIBRENTASVIR
     Indication: HEPATITIS VIRAL
     Dosage: ?          OTHER DOSE:100-40MG X 3;?
     Route: 048
     Dates: start: 202003

REACTIONS (3)
  - Headache [None]
  - Abdominal discomfort [None]
  - Hypophagia [None]

NARRATIVE: CASE EVENT DATE: 20200424
